FAERS Safety Report 12243919 (Version 1)
Quarter: 2016Q2

REPORT INFORMATION
  Report Type: Report from Study
  Country: JP (occurrence: JP)
  Receive Date: 20160406
  Receipt Date: 20160406
  Transmission Date: 20160815
  Serious: Yes (Hospitalization, Other)
  Sender: FDA-Public Use
  Company Number: JP-GILEAD-2016-0206709

PATIENT
  Age: 66 Year
  Sex: Female
  Weight: 36.7 kg

DRUGS (16)
  1. CEFACLOR. [Suspect]
     Active Substance: CEFACLOR
     Indication: PROPHYLAXIS
     Dosage: UNK
     Route: 048
     Dates: start: 20150329, end: 20150424
  2. REVATIO [Concomitant]
     Active Substance: SILDENAFIL CITRATE
     Indication: PULMONARY ARTERIAL HYPERTENSION
     Dosage: UNK
  3. BAYASPIRIN [Concomitant]
     Active Substance: ASPIRIN
     Dosage: UNK
  4. SALAGEN [Concomitant]
     Active Substance: PILOCARPINE HYDROCHLORIDE
     Dosage: UNK
  5. AMBRISENTAN [Suspect]
     Active Substance: AMBRISENTAN
     Dosage: 2.5 MG, QD
     Route: 048
     Dates: start: 20120720, end: 20130124
  6. AMBRISENTAN [Suspect]
     Active Substance: AMBRISENTAN
     Indication: PULMONARY ARTERIAL HYPERTENSION
     Dosage: 5 MG, BID
     Route: 048
     Dates: start: 20140725
  7. CARELOAD [Concomitant]
     Active Substance: BERAPROST SODIUM
     Indication: PULMONARY ARTERIAL HYPERTENSION
     Dosage: UNK
  8. MICARDIS [Concomitant]
     Active Substance: TELMISARTAN
     Dosage: UNK
  9. FERROMIA [Concomitant]
     Active Substance: FERROUS CITRATE
     Dosage: UNK
     Dates: start: 20130222
  10. AMBRISENTAN [Suspect]
     Active Substance: AMBRISENTAN
     Dosage: 2.5 MG, BID
     Route: 048
     Dates: start: 20130125, end: 20130725
  11. PREDONINE [Suspect]
     Active Substance: PREDNISOLONE\PREDNISOLONE ACETATE\PREDNISOLONE SODIUM SUCCINATE
     Indication: PRODUCT USED FOR UNKNOWN INDICATION
     Dosage: UNK
     Route: 048
     Dates: start: 20120806
  12. DIART [Concomitant]
     Active Substance: AZOSEMIDE
     Dosage: UNK
  13. METHYCOBAL [Concomitant]
     Active Substance: METHYLCOBALAMIN
     Dosage: UNK
  14. AMBRISENTAN [Suspect]
     Active Substance: AMBRISENTAN
     Dosage: 7.5 MG, QD
     Route: 048
     Dates: start: 20130726, end: 20140724
  15. AZATHIOPRINE. [Suspect]
     Active Substance: AZATHIOPRINE
     Indication: PRODUCT USED FOR UNKNOWN INDICATION
     Dosage: UNK
     Route: 048
     Dates: start: 20120806, end: 20120823
  16. URSO [Concomitant]
     Active Substance: URSODIOL
     Dosage: UNK

REACTIONS (7)
  - Bacteraemia [Recovered/Resolved]
  - White blood cell count decreased [Recovered/Resolved]
  - Renal impairment [Not Recovered/Not Resolved]
  - Hypothyroidism [Recovered/Resolved]
  - Dyslipidaemia [Recovered/Resolved]
  - Urinary tract infection [Recovered/Resolved]
  - Pseudomembranous colitis [Recovered/Resolved]

NARRATIVE: CASE EVENT DATE: 20120821
